FAERS Safety Report 6179614-7 (Version None)
Quarter: 2009Q2

REPORT INFORMATION
  Report Type: 
  Country: None (occurrence: None)
  Receive Date: 20090505
  Receipt Date: 20090424
  Transmission Date: 20091009
  Serious: Yes (Hospitalization, Disabling, Other)
  Sender: FDA-Public Use
  Company Number: US-MERCK-0612USA04044

PATIENT
  Age: 56 Year
  Sex: Female

DRUGS (1)
  1. FOSAMAX [Suspect]
     Indication: OSTEOPOROSIS
     Route: 048
     Dates: start: 20040901, end: 20060401

REACTIONS (17)
  - ANXIETY [None]
  - ARTHRALGIA [None]
  - ASTHMA [None]
  - ATROPHY [None]
  - CHOLELITHIASIS [None]
  - DEPRESSION [None]
  - DISABILITY [None]
  - FALL [None]
  - HYPERLIPIDAEMIA [None]
  - JAW FRACTURE [None]
  - OSTEOMYELITIS [None]
  - OSTEONECROSIS [None]
  - PELVIC INFLAMMATORY DISEASE [None]
  - RESORPTION BONE INCREASED [None]
  - SEXUALLY TRANSMITTED DISEASE [None]
  - SYPHILIS [None]
  - TEMPOROMANDIBULAR JOINT SYNDROME [None]
